FAERS Safety Report 22155260 (Version 2)
Quarter: 2023Q2

REPORT INFORMATION
  Report Type: Spontaneous
  Country: US (occurrence: None)
  Receive Date: 20230330
  Receipt Date: 20230505
  Transmission Date: 20230722
  Serious: No
  Sender: FDA-Public Use
  Company Number: 2023A063573

PATIENT
  Sex: Female

DRUGS (1)
  1. CALQUENCE [Suspect]
     Active Substance: ACALABRUTINIB
     Indication: Chronic lymphocytic leukaemia
     Route: 048

REACTIONS (8)
  - Withdrawal syndrome [Unknown]
  - Malaise [Unknown]
  - General physical condition abnormal [Unknown]
  - Feeling abnormal [Unknown]
  - Loss of personal independence in daily activities [Unknown]
  - Nausea [Unknown]
  - Product dose omission issue [Unknown]
  - Off label use [Unknown]
